FAERS Safety Report 20648853 (Version 2)
Quarter: 2022Q4

REPORT INFORMATION
  Report Type: Spontaneous
  Country: US (occurrence: US)
  Receive Date: 20220329
  Receipt Date: 20221206
  Transmission Date: 20230112
  Serious: No
  Sender: FDA-Public Use
  Company Number: US-PFIZER INC-2019419067

PATIENT
  Age: 81 Year
  Sex: Female

DRUGS (2)
  1. PREMARIN [Suspect]
     Active Substance: ESTROGENS, CONJUGATED
     Indication: Urinary incontinence
     Dosage: UNK, 2X/WEEK (1/2 APPLICATOR FULL INTRA VAGINALLY TWICE PER WEEK 3 REFILLS)
     Route: 067
  2. PREMARIN [Concomitant]
     Active Substance: ESTROGENS, CONJUGATED
     Dosage: UNK

REACTIONS (3)
  - Memory impairment [Unknown]
  - Off label use [Unknown]
  - Intentional product misuse [Unknown]
